FAERS Safety Report 8941821 (Version 2)
Quarter: 2013Q1

REPORT INFORMATION
  Report Type: Spontaneous
  Country: US (occurrence: US)
  Receive Date: 20121203
  Receipt Date: 20130125
  Transmission Date: 20140127
  Serious: Yes (Death, Hospitalization, Other)
  Sender: FDA-Public Use
  Company Number: US-CELGENEUS-163-21880-12093207

PATIENT
  Age: 71 Year
  Sex: Female
  Weight: 105 kg

DRUGS (10)
  1. REVLIMID [Suspect]
     Indication: ACUTE MYELOID LEUKAEMIA
     Dosage: 10 MILLIGRAM
     Route: 048
     Dates: start: 20120717, end: 20120912
  2. PLAQUENIL [Concomitant]
     Indication: THROMBOCYTOPENIA
     Route: 065
  3. ZOFRAN [Concomitant]
     Indication: NAUSEA
     Dosage: 4 MILLIGRAM
     Route: 065
  4. ZOFRAN [Concomitant]
     Indication: VOMITING
  5. ANASTROZOLE [Concomitant]
     Indication: BREAST CANCER
     Dosage: 1 MILLIGRAM
     Route: 065
  6. LASIX [Concomitant]
     Indication: PRODUCT USED FOR UNKNOWN INDICATION
     Dosage: 160 MILLIGRAM
     Route: 065
  7. LASIX [Concomitant]
     Dosage: 80 MILLIGRAM
     Route: 065
  8. LASIX [Concomitant]
     Dosage: 15 MILLIGRAM
     Route: 041
     Dates: start: 201209
  9. RASBURICASE [Concomitant]
     Indication: BLOOD URIC ACID INCREASED
     Dosage: 3 MILLIGRAM
     Route: 065
     Dates: start: 20120918
  10. HYDROXYUREA [Concomitant]
     Indication: BLAST CELL COUNT INCREASED
     Dosage: 6 GRAM
     Route: 065
     Dates: start: 201209

REACTIONS (7)
  - Acute myeloid leukaemia [Fatal]
  - Transitional cell carcinoma [Fatal]
  - Oedema [Not Recovered/Not Resolved]
  - Urinary tract infection [Not Recovered/Not Resolved]
  - Pneumonia [Not Recovered/Not Resolved]
  - Neutrophil count decreased [Not Recovered/Not Resolved]
  - Thrombocytopenia [Not Recovered/Not Resolved]
